FAERS Safety Report 7139700-1 (Version None)
Quarter: 2010Q4

REPORT INFORMATION
  Report Type: 
  Country: None (occurrence: None)
  Receive Date: 20101207
  Receipt Date: 20100705
  Transmission Date: 20110411
  Serious: Yes (Death, Hospitalization)
  Sender: FDA-Public Use
  Company Number: US-ACTELION-A-NJ2009-31513

PATIENT
  Sex: Female

DRUGS (3)
  1. BOSENTAN TABLET 62.5 MG US [Suspect]
     Indication: PULMONARY ARTERIAL HYPERTENSION
     Dosage: 62.5 MG, BID
     Route: 048
     Dates: start: 20091201
  2. BOSENTAN TABLET 62.5 MG US [Suspect]
     Dosage: 125 MG, BID
     Route: 048
     Dates: end: 20091201
  3. BOSENTAN TABLET 62.5 MG US [Suspect]
     Dosage: UNK
     Route: 048
     Dates: start: 20091022

REACTIONS (8)
  - ANAEMIA [None]
  - AORTIC VALVE REPLACEMENT [None]
  - ATRIAL FIBRILLATION [None]
  - CARDIAC FAILURE CONGESTIVE [None]
  - CARDIAC PACEMAKER INSERTION [None]
  - DEATH [None]
  - FLUID RETENTION [None]
  - OEDEMA PERIPHERAL [None]
